FAERS Safety Report 17414031 (Version 1)
Quarter: 2020Q1

REPORT INFORMATION
  Report Type: Spontaneous
  Country: US (occurrence: US)
  Receive Date: 20200213
  Receipt Date: 20200213
  Transmission Date: 20200409
  Serious: Yes (Death, Other)
  Sender: FDA-Public Use
  Company Number: NVSC2020US038239

PATIENT
  Age: 64 Year
  Sex: Male

DRUGS (4)
  1. CYCLOPHOSPHAMIDE. [Suspect]
     Active Substance: CYCLOPHOSPHAMIDE
     Indication: GLOMERULONEPHRITIS
     Dosage: UNK
     Route: 065
  2. CIPROFLOXACIN. [Concomitant]
     Active Substance: CIPROFLOXACIN
     Indication: PRODUCT USED FOR UNKNOWN INDICATION
     Dosage: UNK
     Route: 065
  3. RITUXIMAB. [Suspect]
     Active Substance: RITUXIMAB
     Indication: GLOMERULONEPHRITIS
     Dosage: UNK (ON HOSPITAL DAY 6)
     Route: 042
  4. PREDNISONE. [Suspect]
     Active Substance: PREDNISONE
     Indication: GLOMERULONEPHRITIS
     Dosage: 40 MG, QD
     Route: 065

REACTIONS (14)
  - Product use in unapproved indication [Unknown]
  - Enterobacter infection [Unknown]
  - Respiratory failure [Unknown]
  - Cough [Unknown]
  - Fatigue [Unknown]
  - Malaise [Unknown]
  - Diarrhoea [Unknown]
  - Coccidioidomycosis [Fatal]
  - Hypoxia [Unknown]
  - Oropharyngeal pain [Unknown]
  - Aphthous ulcer [Unknown]
  - Dyspnoea [Unknown]
  - Cytomegalovirus infection [Unknown]
  - Pyrexia [Unknown]
